FAERS Safety Report 15499114 (Version 29)
Quarter: 2025Q3

REPORT INFORMATION
  Report Type: Report from Study
  Country: US (occurrence: US)
  Receive Date: 20181015
  Receipt Date: 20250929
  Transmission Date: 20251021
  Serious: Yes (Hospitalization, Other)
  Sender: TAKEDA
  Company Number: US-SHIRE-US201837842

PATIENT
  Age: 66 Year
  Sex: Female
  Weight: 84 kg

DRUGS (43)
  1. HUMAN IMMUNOGLOBULIN G\HYALURONIDASE RECOMBINANT HUMAN [Suspect]
     Active Substance: HUMAN IMMUNOGLOBULIN G\HYALURONIDASE (HUMAN RECOMBINANT)
     Indication: Primary immunodeficiency syndrome
     Dosage: 50 GRAM, MONTHLY
  2. HUMAN IMMUNOGLOBULIN G\HYALURONIDASE RECOMBINANT HUMAN [Suspect]
     Active Substance: HUMAN IMMUNOGLOBULIN G\HYALURONIDASE (HUMAN RECOMBINANT)
     Indication: Asthma
     Dosage: 20 GRAM, Q4WEEKS
  3. HUMAN IMMUNOGLOBULIN G\HYALURONIDASE RECOMBINANT HUMAN [Suspect]
     Active Substance: HUMAN IMMUNOGLOBULIN G\HYALURONIDASE (HUMAN RECOMBINANT)
     Indication: IgG deficiency
     Dosage: 20 GRAM, MONTHLY
  4. HUMAN IMMUNOGLOBULIN G\HYALURONIDASE RECOMBINANT HUMAN [Suspect]
     Active Substance: HUMAN IMMUNOGLOBULIN G\HYALURONIDASE (HUMAN RECOMBINANT)
     Indication: Hypogammaglobulinaemia
     Dosage: 30 GRAM, Q4WEEKS
  5. HUMAN IMMUNOGLOBULIN G\HYALURONIDASE RECOMBINANT HUMAN [Suspect]
     Active Substance: HUMAN IMMUNOGLOBULIN G\HYALURONIDASE (HUMAN RECOMBINANT)
     Dosage: 30 GRAM, Q2WEEKS
  6. HUMAN IMMUNOGLOBULIN G\HYALURONIDASE RECOMBINANT HUMAN [Suspect]
     Active Substance: HUMAN IMMUNOGLOBULIN G\HYALURONIDASE (HUMAN RECOMBINANT)
  7. HUMAN IMMUNOGLOBULIN G\HYALURONIDASE RECOMBINANT HUMAN [Suspect]
     Active Substance: HUMAN IMMUNOGLOBULIN G\HYALURONIDASE (HUMAN RECOMBINANT)
     Dosage: 30 GRAM, Q4WEEKS
  8. DIPHENHYDRAMINE HYDROCHLORIDE [Concomitant]
     Active Substance: DIPHENHYDRAMINE HYDROCHLORIDE
  9. SYMBICORT [Concomitant]
     Active Substance: BUDESONIDE\FORMOTEROL FUMARATE DIHYDRATE
  10. EPINEPHRINE [Concomitant]
     Active Substance: EPINEPHRINE
  11. SYNTHROID [Concomitant]
     Active Substance: LEVOTHYROXINE SODIUM
  12. XOLAIR [Concomitant]
     Active Substance: OMALIZUMAB
  13. NEXIUM [Concomitant]
     Active Substance: ESOMEPRAZOLE MAGNESIUM
  14. ZYRTEC [Concomitant]
     Active Substance: CETIRIZINE HYDROCHLORIDE
  15. ACETAMINOPHEN [Concomitant]
     Active Substance: ACETAMINOPHEN
  16. SINGULAIR [Concomitant]
     Active Substance: MONTELUKAST SODIUM
  17. FLONASE ALLERGY RELIEF [Concomitant]
     Active Substance: FLUTICASONE PROPIONATE
  18. AZELASTINE HYDROCHLORIDE [Concomitant]
     Active Substance: AZELASTINE HYDROCHLORIDE
  19. SODIUM CHLORIDE [Concomitant]
     Active Substance: SODIUM CHLORIDE
  20. NORVASC [Concomitant]
     Active Substance: AMLODIPINE BESYLATE
  21. FLONASE [Concomitant]
     Active Substance: FLUTICASONE PROPIONATE
  22. CRESTOR [Concomitant]
     Active Substance: ROSUVASTATIN CALCIUM
  23. ASPIRIN [Concomitant]
     Active Substance: ASPIRIN
  24. ZETIA [Concomitant]
     Active Substance: EZETIMIBE
  25. LOSARTAN POTASSIUM [Concomitant]
     Active Substance: LOSARTAN POTASSIUM
  26. LIDOCAINE [Concomitant]
     Active Substance: LIDOCAINE
  27. PULMICORT FLEXHALER [Concomitant]
     Active Substance: BUDESONIDE
  28. HYDROCHLOROTHIAZIDE [Concomitant]
     Active Substance: HYDROCHLOROTHIAZIDE
  29. MIRALAX [Concomitant]
     Active Substance: POLYETHYLENE GLYCOL 3350
  30. SPIRIVA RESPIMAT [Concomitant]
     Active Substance: TIOTROPIUM BROMIDE
  31. AMLODIPINE [Concomitant]
     Active Substance: AMLODIPINE BESYLATE
  32. CLONAZEPAM [Concomitant]
     Active Substance: CLONAZEPAM
  33. MAGNESIUM OXIDE [Concomitant]
     Active Substance: MAGNESIUM OXIDE
  34. METHYLPREDNISOLONE [Concomitant]
     Active Substance: METHYLPREDNISOLONE
  35. CALCIUM [Concomitant]
     Active Substance: CALCIUM
  36. VITAMIN C [Concomitant]
     Active Substance: ASCORBIC ACID
  37. LEVALBUTEROL [Concomitant]
     Active Substance: LEVALBUTEROL
  38. XOPENEX [Concomitant]
     Active Substance: LEVALBUTEROL HYDROCHLORIDE
  39. VITAMIN D3 [Concomitant]
     Active Substance: CHOLECALCIFEROL
  40. AMLODIPINE BESYLATE [Concomitant]
     Active Substance: AMLODIPINE BESYLATE
  41. CALCIUM\CHOLECALCIFEROL [Concomitant]
     Active Substance: CALCIUM\CHOLECALCIFEROL
  42. XOPENEX HFA [Concomitant]
     Active Substance: LEVALBUTEROL TARTRATE
  43. SODIUM CHLORIDE [Concomitant]
     Active Substance: SODIUM CHLORIDE

REACTIONS (22)
  - Pneumonia [Unknown]
  - Cerebrovascular accident [Unknown]
  - Transient ischaemic attack [Unknown]
  - Mycobacterium avium complex infection [Unknown]
  - Inflammation [Unknown]
  - Somnolence [Unknown]
  - Blood creatine phosphokinase increased [Unknown]
  - Bronchospasm [Unknown]
  - Pain [Unknown]
  - Pyrexia [Unknown]
  - Sinusitis [Unknown]
  - Influenza [Unknown]
  - Bronchitis [Not Recovered/Not Resolved]
  - Memory impairment [Unknown]
  - Device infusion issue [Unknown]
  - Product dose omission issue [Unknown]
  - Respiratory tract infection [Unknown]
  - Viral infection [Unknown]
  - Post-acute COVID-19 syndrome [Not Recovered/Not Resolved]
  - Illness [Unknown]
  - Inappropriate schedule of product administration [Unknown]
  - Cough [Unknown]

NARRATIVE: CASE EVENT DATE: 20221027
